FAERS Safety Report 7963106 (Version 4)
Quarter: 2014Q2

REPORT INFORMATION
  Report Type: Spontaneous
  Country: US (occurrence: US)
  Receive Date: 20110526
  Receipt Date: 20140506
  Transmission Date: 20141212
  Serious: Yes (Life-Threatening, Hospitalization, Other)
  Sender: FDA-Public Use
  Company Number: PHHY2011US41890

PATIENT
  Age: 13 Year
  Sex: Female

DRUGS (4)
  1. AMITRIPTYLINE [Suspect]
     Dosage: UNK UKN, UNK
  2. LIPID EMULSION [Suspect]
     Dosage: 0.25 MG/KG/MIN
  3. NORTRIPTYLINE [Concomitant]
     Dosage: UNK UKN, UNK
  4. PROPOFOL [Concomitant]
     Dosage: UNK UKN, UNK

REACTIONS (16)
  - Thrombophlebitis [Recovered/Resolved]
  - Staphylococcal infection [Recovered/Resolved]
  - Pneumonia aspiration [Recovered/Resolved]
  - Cardiac arrest [Recovered/Resolved]
  - Convulsion [Recovered/Resolved]
  - Coma [Recovered/Resolved]
  - Torsade de pointes [Recovered/Resolved]
  - Tachycardia [Recovered/Resolved]
  - Electrocardiogram QRS complex prolonged [Recovered/Resolved]
  - Respiratory rate decreased [Recovered/Resolved]
  - Acute respiratory distress syndrome [Recovered/Resolved]
  - Bradypnoea [Recovered/Resolved]
  - Pleural effusion [Recovered/Resolved]
  - Pancreatitis [Recovered/Resolved]
  - Abdominal pain upper [Recovered/Resolved]
  - Overdose [Recovered/Resolved]
